FAERS Safety Report 5794394-2 (Version None)
Quarter: 2008Q2

REPORT INFORMATION
  Report Type: 
  Country: None (occurrence: None)
  Receive Date: 20080625
  Receipt Date: 20080613
  Transmission Date: 20081010
  Serious: Yes (Other)
  Sender: FDA-Public Use
  Company Number: 2008AL005445

PATIENT
  Age: 90 Year
  Sex: Male
  Weight: 76.6579 kg

DRUGS (1)
  1. DIGOXIN [Suspect]
     Indication: ATRIAL FIBRILLATION
     Dosage: 0.125 MG DAILY PO
     Route: 048

REACTIONS (1)
  - CARDIOACTIVE DRUG LEVEL ABOVE THERAPEUTIC [None]
